FAERS Safety Report 15901332 (Version 3)
Quarter: 2019Q4

REPORT INFORMATION
  Report Type: Spontaneous
  Country: ES (occurrence: ES)
  Receive Date: 20190201
  Receipt Date: 20191222
  Transmission Date: 20200122
  Serious: Yes (Death, Hospitalization, Other)
  Sender: FDA-Public Use
  Company Number: ES-ALEXION PHARMACEUTICALS INC.-A201901603

PATIENT
  Sex: Male

DRUGS (4)
  1. SOLIRIS [Suspect]
     Active Substance: ECULIZUMAB
     Indication: PAROXYSMAL NOCTURNAL HAEMOGLOBINURIA
     Dosage: 600 MG, QW
     Route: 065
     Dates: start: 20170117
  2. SOLIRIS [Suspect]
     Active Substance: ECULIZUMAB
     Dosage: 600 MG, UNK
     Route: 065
  3. CORTICOSTEROID NOS [Concomitant]
     Active Substance: CORTICOSTEROID NOS
     Indication: PRODUCT USED FOR UNKNOWN INDICATION
     Dosage: UNK
     Route: 065
  4. SOLIRIS [Suspect]
     Active Substance: ECULIZUMAB
     Dosage: 900 MG, Q2W
     Route: 065

REACTIONS (34)
  - Blood urea increased [Unknown]
  - Blood bilirubin increased [Unknown]
  - Pupils unequal [Unknown]
  - Acute kidney injury [Unknown]
  - Spherocytic anaemia [Unknown]
  - Haemoglobin decreased [Unknown]
  - Multiple organ dysfunction syndrome [Fatal]
  - Congestive cardiomyopathy [Unknown]
  - Liver disorder [Unknown]
  - Splenomegaly [Unknown]
  - C-reactive protein increased [Unknown]
  - Haemodialysis [Unknown]
  - Pneumonia [Unknown]
  - Joint injury [Unknown]
  - Anaemia [Unknown]
  - Cardiac arrest [Fatal]
  - Respiratory tract infection [Unknown]
  - Blood pressure decreased [Unknown]
  - Blood lactate dehydrogenase increased [Unknown]
  - Platelet count decreased [Unknown]
  - Hypersensitivity vasculitis [Unknown]
  - Procalcitonin increased [Unknown]
  - Hypotension [Unknown]
  - Blood creatinine increased [Unknown]
  - Cold agglutinins [Unknown]
  - Epstein-Barr virus test positive [Unknown]
  - Dyspnoea [Unknown]
  - Skin lesion [Unknown]
  - Angiocentric lymphoma [Unknown]
  - Heart rate increased [Unknown]
  - Tachycardia [Unknown]
  - Haemolytic anaemia [Unknown]
  - Pancreatitis acute [Unknown]
  - Endotracheal intubation [Unknown]

NARRATIVE: CASE EVENT DATE: 20190108
